FAERS Safety Report 23148066 (Version 2)
Quarter: 2023Q4

REPORT INFORMATION
  Report Type: Spontaneous
  Country: SE (occurrence: SE)
  Receive Date: 20231106
  Receipt Date: 20231106
  Transmission Date: 20240109
  Serious: Yes (Life-Threatening, Hospitalization, Other)
  Sender: FDA-Public Use
  Company Number: SE-ROCHE-3448404

PATIENT
  Age: 52 Year
  Sex: Female

DRUGS (6)
  1. CYCLOSPORINE [Interacting]
     Active Substance: CYCLOSPORINE
     Indication: Prophylaxis against transplant rejection
     Dosage: 100 MG, QD
     Route: 065
  2. CYCLOSPORINE [Interacting]
     Active Substance: CYCLOSPORINE
     Indication: Granulomatosis with polyangiitis
  3. PREDNISOLONE [Interacting]
     Active Substance: PREDNISOLONE
     Indication: Prophylaxis against transplant rejection
     Dosage: 5 MG
     Route: 065
  4. PREDNISOLONE [Interacting]
     Active Substance: PREDNISOLONE
     Indication: Granulomatosis with polyangiitis
  5. RITUXIMAB [Interacting]
     Active Substance: RITUXIMAB
     Indication: Prophylaxis against transplant rejection
     Dosage: EVERY 6TH MONTH
     Route: 065
  6. RITUXIMAB [Interacting]
     Active Substance: RITUXIMAB
     Indication: Granulomatosis with polyangiitis

REACTIONS (3)
  - COVID-19 [Recovered/Resolved]
  - Vaccination failure [Unknown]
  - Vaccine interaction [Unknown]
